FAERS Safety Report 6540331-2 (Version None)
Quarter: 2010Q1

REPORT INFORMATION
  Report Type: 
  Country: None (occurrence: None)
  Receive Date: 20100115
  Receipt Date: 20100113
  Transmission Date: 20100710
  Serious: Yes (Death)
  Sender: FDA-Public Use
  Company Number: PHHY2009BR51405

PATIENT
  Sex: Male

DRUGS (2)
  1. FORASEQ [Suspect]
     Indication: EMPHYSEMA
     Dosage: ONCE A DAY
  2. SPIRIVA [Concomitant]
     Dosage: 2 YEARS

REACTIONS (3)
  - DYSPNOEA [None]
  - INFARCTION [None]
  - RESPIRATORY FAILURE [None]
